FAERS Safety Report 19330804 (Version 2)
Quarter: 2021Q2

REPORT INFORMATION
  Report Type: Spontaneous
  Country: CA (occurrence: CA)
  Receive Date: 20210528
  Receipt Date: 20210618
  Transmission Date: 20210717
  Serious: Yes (Other)
  Sender: FDA-Public Use
  Company Number: CA-TAKEDA-2021TUS033844

PATIENT
  Age: 85 Year
  Sex: Female

DRUGS (22)
  1. OMEGA 3 [FISH OIL] [Concomitant]
     Active Substance: FISH OIL
     Dosage: 600 MILLIGRAM, QD
     Route: 048
  2. DEXAMETHASONE. [Suspect]
     Active Substance: DEXAMETHASONE
     Dosage: 12 MILLIGRAM, 1/WEEK
     Route: 065
  3. PANTOPRAZOLE [Concomitant]
     Active Substance: PANTOPRAZOLE
     Dosage: 40 MILLIGRAM, QD
     Route: 065
  4. SODIUM BICARBONATE. [Concomitant]
     Active Substance: SODIUM BICARBONATE
     Dosage: 500 MILLIGRAM, BID
     Route: 048
  5. ACETAMINOPHEN. [Concomitant]
     Active Substance: ACETAMINOPHEN
     Dosage: 1000 MILLIGRAM
     Route: 048
  6. POTASSIUM CHLORIDE. [Concomitant]
     Active Substance: POTASSIUM CHLORIDE
     Dosage: 20 MILLIEQUIVALENT, BID
     Route: 048
  7. DEXAMETHASONE. [Suspect]
     Active Substance: DEXAMETHASONE
     Indication: PLASMA CELL MYELOMA
     Dosage: 12 MILLIGRAM, 1/WEEK
     Route: 065
  8. AMLODIPINE [Concomitant]
     Active Substance: AMLODIPINE BESYLATE
     Dosage: 10 MILLIGRAM, QD
     Route: 048
  9. NINLARO [Suspect]
     Active Substance: IXAZOMIB CITRATE
     Dosage: 2.3 MILLIGRAM
     Route: 048
  10. ASA [Concomitant]
     Active Substance: ASPIRIN
     Dosage: 81 MILLIGRAM, QD
     Route: 065
  11. LACTULOSE. [Concomitant]
     Active Substance: LACTULOSE
     Dosage: UNK
     Route: 048
  12. MAGNESIUM OXIDE. [Concomitant]
     Active Substance: MAGNESIUM OXIDE
     Dosage: 420 MILLIGRAM, BID
     Route: 048
  13. VITAMIN B12 [COBAMAMIDE] [Concomitant]
     Active Substance: COBAMAMIDE
     Dosage: 1200 MICROGRAM, QD
     Route: 048
  14. XALATAN [Concomitant]
     Active Substance: LATANOPROST
     Dosage: UNK
     Route: 065
  15. VELCADE [Suspect]
     Active Substance: BORTEZOMIB
     Indication: PLASMA CELL MYELOMA
     Dosage: UNK
     Route: 042
  16. DEXAMETHASONE. [Suspect]
     Active Substance: DEXAMETHASONE
     Dosage: UNK
     Route: 065
  17. REVLIMID [Suspect]
     Active Substance: LENALIDOMIDE
     Dosage: 5 MILLIGRAM
     Route: 065
  18. VITAMIN B6 [Concomitant]
     Active Substance: PYRIDOXINE HYDROCHLORIDE
     Dosage: 100 MILLIGRAM, QD
     Route: 048
  19. VITAMIN D3 [Concomitant]
     Active Substance: CHOLECALCIFEROL
     Dosage: UNK, QD
     Route: 048
  20. METOPROLOL. [Concomitant]
     Active Substance: METOPROLOL
     Dosage: 25 MILLIGRAM, BID
     Route: 048
  21. NINLARO [Suspect]
     Active Substance: IXAZOMIB CITRATE
     Indication: PLASMA CELL MYELOMA
     Dosage: 2.3 MILLIGRAM
     Route: 048
  22. REVLIMID [Suspect]
     Active Substance: LENALIDOMIDE
     Indication: PLASMA CELL MYELOMA
     Dosage: 5 MILLIGRAM
     Route: 065

REACTIONS (14)
  - Heart rate abnormal [Unknown]
  - Diarrhoea [Unknown]
  - Paraesthesia [Unknown]
  - Dementia [Unknown]
  - Orthostatic hypotension [Unknown]
  - Oedema peripheral [Unknown]
  - Blood calcium abnormal [Unknown]
  - Blood magnesium decreased [Unknown]
  - Blood albumin abnormal [Unknown]
  - Hypokalaemia [Unknown]
  - Depression [Unknown]
  - Hypertension [Unknown]
  - Off label use [Unknown]
  - Cardiac amyloidosis [Unknown]
